FAERS Safety Report 12108684 (Version 2)
Quarter: 2016Q1

REPORT INFORMATION
  Report Type: Spontaneous
  Country: FR (occurrence: FR)
  Receive Date: 20160224
  Receipt Date: 20160304
  Transmission Date: 20160526
  Serious: Yes (Other)
  Sender: FDA-Public Use
  Company Number: FR-ACCORD-038155

PATIENT
  Age: 71 Year
  Sex: Male
  Weight: 78 kg

DRUGS (2)
  1. METOCLOPRAMIDE. [Suspect]
     Active Substance: METOCLOPRAMIDE
     Indication: ADENOCARCINOMA PANCREAS
     Dosage: 10 MG ONCE A DAY (IN A SINGLE DOSE)
     Route: 042
     Dates: start: 20151216, end: 20151216
  2. GEMCITABINE INTAS [Suspect]
     Active Substance: GEMCITABINE HYDROCHLORIDE
     Indication: ADENOCARCINOMA PANCREAS
     Dosage: 1890 MG ONCE A DAY (IN A SINGLE DOSE)
     Route: 042
     Dates: start: 20151216, end: 20151216

REACTIONS (3)
  - Dermatitis acneiform [Recovered/Resolved]
  - Toxic skin eruption [Recovered/Resolved]
  - Pruritus [Recovered/Resolved]

NARRATIVE: CASE EVENT DATE: 20151218
